FAERS Safety Report 5936944-9 (Version None)
Quarter: 2008Q4

REPORT INFORMATION
  Report Type: 
  Country: None (occurrence: None)
  Receive Date: 20081031
  Receipt Date: 20081024
  Transmission Date: 20090506
  Serious: Yes (Hospitalization)
  Sender: FDA-Public Use
  Company Number: US-BAYER-200832344NA

PATIENT
  Age: 26 Year
  Sex: Female
  Weight: 72 kg

DRUGS (2)
  1. YAZ [Suspect]
     Indication: CONTRACEPTION
     Route: 048
     Dates: start: 20070101
  2. KEFLEX [Concomitant]
     Indication: DRUG USE FOR UNKNOWN INDICATION

REACTIONS (6)
  - COXSACKIE VIRAL INFECTION [None]
  - DYSURIA [None]
  - KIDNEY INFECTION [None]
  - NEPHROLITHIASIS [None]
  - POLLAKIURIA [None]
  - URINARY TRACT INFECTION [None]
